FAERS Safety Report 24602650 (Version 1)
Quarter: 2024Q4

REPORT INFORMATION
  Report Type: Spontaneous
  Country: US (occurrence: US)
  Receive Date: 20241111
  Receipt Date: 20241111
  Transmission Date: 20250115
  Serious: Yes (Other)
  Sender: AUROBINDO
  Company Number: US-AUROBINDO-AUR-APL-2024-055388

PATIENT
  Age: 81 Year
  Sex: Male

DRUGS (3)
  1. METHYLPREDNISOLONE [Suspect]
     Active Substance: METHYLPREDNISOLONE
     Indication: Myocarditis
     Dosage: 1000 MILLIGRAM PER DAYS
     Route: 065
  2. PREDNISONE [Suspect]
     Active Substance: PREDNISONE
     Indication: Myocarditis
     Dosage: 60 MILLIGRAM, DAILY
     Route: 065
  3. Immunoglobulin [Concomitant]
     Indication: Product used for unknown indication
     Dosage: 400 KILOGRAM PER DAY FOR 5 DAYS
     Route: 042

REACTIONS (2)
  - Myasthenia gravis [Recovered/Resolved]
  - Drug ineffective [Unknown]
